FAERS Safety Report 4913054-0 (Version None)
Quarter: 2006Q1

REPORT INFORMATION
  Report Type: 
  Country: None (occurrence: None)
  Receive Date: 20060210
  Receipt Date: 20060127
  Transmission Date: 20060701
  Serious: Yes (Death, Hospitalization)
  Sender: FDA-Public Use
  Company Number: L05-USA-03935-01

PATIENT
  Age: 12 Year
  Sex: Female

DRUGS (3)
  1. CITALOPRAM [Suspect]
  2. DIPHENHYDRAMINE HCL [Suspect]
     Dosage: 5 G
  3. ACTIVATED CHARCOAL (CHARCOAL ACTIVATED) [Suspect]

REACTIONS (9)
  - ASPIRATION [None]
  - BRADYCARDIA [None]
  - BRAIN DEATH [None]
  - CARDIAC ARREST [None]
  - CONVULSION [None]
  - ELECTROCARDIOGRAM ABNORMAL [None]
  - LUNG INJURY [None]
  - MENTAL STATUS CHANGES [None]
  - MULTIPLE DRUG OVERDOSE [None]
